FAERS Safety Report 9639648 (Version 2)
Quarter: 2013Q4

REPORT INFORMATION
  Report Type: Report from Study
  Country: JP (occurrence: JP)
  Receive Date: 20131023
  Receipt Date: 20131023
  Transmission Date: 20140711
  Serious: Yes (Life-Threatening, Hospitalization, Other)
  Sender: FDA-Public Use
  Company Number: JP-ROCHE-1251902

PATIENT
  Age: 35 Year
  Sex: Male
  Weight: 70 kg

DRUGS (23)
  1. PEG-INTERFERON ALFA 2A [Suspect]
     Indication: HEPATIC CIRRHOSIS
     Route: 058
     Dates: start: 20121002, end: 20121227
  2. RIBAVIRIN [Suspect]
     Indication: HEPATIC CIRRHOSIS
     Route: 048
     Dates: start: 20121002, end: 20121219
  3. RIBAVIRIN [Suspect]
     Indication: HEPATIC CIRRHOSIS
     Route: 048
     Dates: start: 20121220, end: 20121226
  4. RIBAVIRIN [Suspect]
     Indication: HEPATIC CIRRHOSIS
     Route: 048
     Dates: start: 20121227, end: 20130106
  5. LENDEM D [Concomitant]
     Indication: PROPHYLAXIS
     Dosage: AT THE SLEEP LOSS
     Route: 048
     Dates: start: 20121003, end: 20121031
  6. NEXIUM [Concomitant]
     Indication: PROPHYLAXIS
     Route: 048
     Dates: start: 20121016, end: 20121219
  7. NEXIUM [Concomitant]
     Route: 048
     Dates: start: 20121231, end: 20130213
  8. UBIRON [Concomitant]
     Indication: HEPATIC CIRRHOSIS
     Route: 048
     Dates: start: 20121016, end: 20130213
  9. LASIX [Concomitant]
     Indication: PROPHYLAXIS
     Route: 048
     Dates: start: 20121016, end: 20121114
  10. NOIDOUBLE [Concomitant]
     Indication: PROPHYLAXIS
     Route: 048
     Dates: start: 20121016, end: 20130213
  11. PROMAC (JAPAN) [Concomitant]
     Indication: PROPHYLAXIS
     Route: 048
     Dates: start: 20121016, end: 20121226
  12. KANAMYCIN [Concomitant]
     Indication: PROPHYLAXIS
     Route: 048
     Dates: start: 20121016, end: 20121226
  13. BAYASPIRIN [Concomitant]
     Indication: PROPHYLAXIS
     Route: 048
     Dates: start: 20121023, end: 20130108
  14. WARFARIN [Concomitant]
     Route: 048
     Dates: start: 20121023, end: 20130108
  15. WARFARIN [Concomitant]
     Route: 048
     Dates: start: 20121120, end: 20121217
  16. ALLEGRA [Concomitant]
     Indication: PROPHYLAXIS
     Route: 048
     Dates: start: 20121108, end: 20121219
  17. DEXALTIN [Concomitant]
     Indication: PROPHYLAXIS
     Dosage: PROPER QUANTITY
     Route: 003
     Dates: start: 20121214, end: 20121220
  18. DIART [Concomitant]
     Indication: PROPHYLAXIS
     Route: 048
     Dates: start: 20121227, end: 20130213
  19. ALLOID G [Concomitant]
     Indication: PROPHYLAXIS
     Route: 048
     Dates: start: 20121229, end: 20130130
  20. MAALOX (CALCIUM CARBONATE) [Concomitant]
     Indication: PROPHYLAXIS
     Route: 048
     Dates: start: 20121229, end: 20130123
  21. MYSLEE [Concomitant]
     Indication: PROPHYLAXIS
     Dosage: AT THE SLEEP LOSS
     Route: 048
     Dates: start: 20130104, end: 20130126
  22. RINDERON-VG [Concomitant]
     Indication: PROPHYLAXIS
     Dosage: PROPER QUANTITY
     Route: 003
     Dates: start: 20130116, end: 20130123
  23. LIVACT [Concomitant]
     Route: 048
     Dates: start: 20130124, end: 20130213

REACTIONS (3)
  - Oesophageal varices haemorrhage [Recovering/Resolving]
  - Anaemia [Recovered/Resolved]
  - Drug eruption [Recovered/Resolved]
